FAERS Safety Report 12240904 (Version 1)
Quarter: 2016Q2

REPORT INFORMATION
  Report Type: Spontaneous
  Country: US (occurrence: None)
  Receive Date: 20160405
  Receipt Date: 20160405
  Transmission Date: 20160815
  Serious: Yes (Death, Hospitalization)
  Sender: FDA-Public Use
  Company Number: None

PATIENT
  Age: 66 Year
  Sex: Female
  Weight: 47 kg

DRUGS (1)
  1. CETUXIMAB, 200 MG/100 ML [Suspect]
     Active Substance: CETUXIMAB
     Route: 042
     Dates: start: 20160328, end: 20160328

REACTIONS (3)
  - Brain injury [None]
  - Cardiac arrest [None]
  - Hypoxia [None]

NARRATIVE: CASE EVENT DATE: 20160328
